FAERS Safety Report 8186261-4 (Version None)
Quarter: 2012Q1

REPORT INFORMATION
  Report Type: 
  Country: None (occurrence: None)
  Receive Date: 20120301
  Receipt Date: 20120217
  Transmission Date: 20120608
  Serious: Yes (Other)
  Sender: FDA-Public Use
  Company Number: JP-2012-10489

PATIENT
  Age: 89 Year
  Sex: Female
  Weight: 48 kg

DRUGS (3)
  1. WARFARIN SODIUM [Concomitant]
  2. SAMSCA [Suspect]
     Indication: FLUID RETENTION
     Dosage: 15 MG MILLIGRAM(S), QAM, ORAL
     Route: 048
     Dates: start: 20120106
  3. ALDACTONE [Suspect]
     Indication: CARDIAC FAILURE
     Dosage: 50 MG MILLIGRAM(S), DAILY DOSE, ORAL
     Route: 048
     Dates: end: 20120113

REACTIONS (1)
  - RENAL IMPAIRMENT [None]
